FAERS Safety Report 5168090-9 (Version None)
Quarter: 2006Q4

REPORT INFORMATION
  Report Type: 
  Country: None (occurrence: None)
  Receive Date: 20061208
  Receipt Date: 20061124
  Transmission Date: 20070319
  Serious: Yes (Disabling, Other)
  Sender: FDA-Public Use
  Company Number: GB-PURDUE-GBR_2006_0002633

PATIENT
  Sex: Female

DRUGS (1)
  1. SEVREDOL TABLETS [Suspect]
     Indication: HEADACHE
     Route: 065
     Dates: start: 20060201

REACTIONS (3)
  - DRUG INEFFECTIVE [None]
  - MALAISE [None]
  - URINE OUTPUT DECREASED [None]
